FAERS Safety Report 5262323-6 (Version None)
Quarter: 2007Q1

REPORT INFORMATION
  Report Type: 
  Country: None (occurrence: None)
  Receive Date: 20070308
  Receipt Date: 20070227
  Transmission Date: 20070707
  Serious: Yes (Hospitalization)
  Sender: FDA-Public Use
  Company Number: GXKR2003GB00762

PATIENT
  Age: 48 Year
  Sex: Female

DRUGS (3)
  1. FOLIC ACID [Suspect]
     Dosage: 5 MG, QD
     Dates: start: 20021001
  2. TRIMETHOPRIM [Suspect]
     Indication: URINARY TRACT INFECTION
     Dosage: 200 MG
     Dates: start: 20030101, end: 20030101
  3. METHOTREXATE [Suspect]
     Dosage: 10 MG, QW
     Dates: start: 20021001

REACTIONS (4)
  - BONE MARROW FAILURE [None]
  - DRUG INTERACTION [None]
  - HAEMOLYTIC ANAEMIA [None]
  - METASTASIS [None]
